FAERS Safety Report 18756577 (Version 1)
Quarter: 2021Q1

REPORT INFORMATION
  Report Type: Spontaneous
  Country: US (occurrence: US)
  Receive Date: 20210118
  Receipt Date: 20210118
  Transmission Date: 20210419
  Serious: Yes (Disabling)
  Sender: FDA-Public Use
  Company Number: None

PATIENT
  Age: 74 Year
  Sex: Female
  Weight: 75.6 kg

DRUGS (27)
  1. RISPERIDONE. [Suspect]
     Active Substance: RISPERIDONE
     Indication: BIPOLAR I DISORDER
     Dosage: ?          QUANTITY:0.5 TABLET(S);?
     Route: 048
  2. IRON [Concomitant]
     Active Substance: IRON
  3. FLONASE [Concomitant]
     Active Substance: FLUTICASONE PROPIONATE
  4. DEXTROAMPHETAMINE. [Concomitant]
     Active Substance: DEXTROAMPHETAMINE
  5. DULOXETINE. [Concomitant]
     Active Substance: DULOXETINE
  6. OMEPRAZOLE. [Concomitant]
     Active Substance: OMEPRAZOLE
  7. BUSPIRONE [Suspect]
     Active Substance: BUSPIRONE HYDROCHLORIDE
  8. TRAZODONE [Concomitant]
     Active Substance: TRAZODONE HYDROCHLORIDE
  9. AREDS2 [Concomitant]
  10. LATUDA [Suspect]
     Active Substance: LURASIDONE HYDROCHLORIDE
     Indication: DEPRESSION SUICIDAL
     Dosage: ?          QUANTITY:1 TABLET(S);?
     Route: 048
     Dates: start: 20190901
  11. ALBUTEROL. [Concomitant]
     Active Substance: ALBUTEROL
  12. TIOTROPIUM [Concomitant]
     Active Substance: TIOTROPIUM
  13. TOPIRAMATE. [Concomitant]
     Active Substance: TOPIRAMATE
  14. VITAMIN C [Concomitant]
     Active Substance: ASCORBIC ACID
  15. MULTIVITAMIN [Concomitant]
     Active Substance: VITAMINS
  16. ASPIRIN. [Concomitant]
     Active Substance: ASPIRIN
  17. ATORVASTATIN [Concomitant]
     Active Substance: ATORVASTATIN
  18. WELLBUTRIN [Concomitant]
     Active Substance: BUPROPION HYDROCHLORIDE
  19. CLARITIN [Concomitant]
     Active Substance: LORATADINE
  20. DULCOLAX NOS [Concomitant]
     Active Substance: BISACODYL OR DOCUSATE SODIUM
  21. AMLODIPINE [Concomitant]
     Active Substance: AMLODIPINE BESYLATE
  22. CELECOXIB. [Concomitant]
     Active Substance: CELECOXIB
  23. METOPROLOL TARTRATE. [Concomitant]
     Active Substance: METOPROLOL TARTRATE
  24. NITROGLYCERIN. [Concomitant]
     Active Substance: NITROGLYCERIN
  25. VITAMIN D [Concomitant]
     Active Substance: VITAMIN D NOS
  26. LAMOTRIGINE. [Concomitant]
     Active Substance: LAMOTRIGINE
  27. LEVOTHYROXINE. [Concomitant]
     Active Substance: LEVOTHYROXINE

REACTIONS (5)
  - Bone pain [None]
  - Myalgia [None]
  - Mania [None]
  - Anger [None]
  - Disturbance in attention [None]

NARRATIVE: CASE EVENT DATE: 20191001
